FAERS Safety Report 7956538-3 (Version None)
Quarter: 2011Q4

REPORT INFORMATION
  Report Type: 
  Country: None (occurrence: None)
  Receive Date: 20111205
  Receipt Date: 20111202
  Transmission Date: 20120403
  Serious: Yes (Life-Threatening)
  Sender: FDA-Public Use
  Company Number: IT-JNJFOC-20111002003

PATIENT
  Sex: Female

DRUGS (5)
  1. FLURAZEPAM HYDROCHLORIDE [Suspect]
     Indication: ANXIETY
     Dosage: 15 MG CAPSULE
     Route: 048
     Dates: start: 20111002, end: 20111002
  2. ANAFRANIL [Suspect]
     Indication: DEPRESSION
     Dosage: 75 MG TABLET
     Route: 048
     Dates: start: 20111002, end: 20111002
  3. ANAFRANIL [Suspect]
     Dosage: 25 MG TABLET
     Route: 048
     Dates: start: 20111002, end: 20111002
  4. FLURAZEPAM HYDROCHLORIDE [Suspect]
     Dosage: 30 MG CAPSULE
     Route: 048
     Dates: start: 20111002, end: 20111002
  5. HALDOL [Suspect]
     Indication: SCHIZOPHRENIA
     Dosage: 3 BOTTLES OF 0.2%
     Route: 048
     Dates: start: 20111002, end: 20111002

REACTIONS (4)
  - SOPOR [None]
  - SUICIDE ATTEMPT [None]
  - MULTIPLE DRUG OVERDOSE INTENTIONAL [None]
  - HYPORESPONSIVE TO STIMULI [None]
